FAERS Safety Report 8330010-3 (Version None)
Quarter: 2012Q2

REPORT INFORMATION
  Report Type: 
  Country: None (occurrence: None)
  Receive Date: 20120502
  Receipt Date: 20091221
  Transmission Date: 20120825
  Serious: No
  Sender: FDA-Public Use
  Company Number: US-TEVA-2009029812

PATIENT
  Sex: Female
  Weight: 90.8 kg

DRUGS (4)
  1. NASAL SPRAY [Concomitant]
     Indication: HYPERSENSITIVITY
     Route: 055
  2. NEXIUM [Concomitant]
     Indication: GASTROOESOPHAGEAL REFLUX DISEASE
     Dosage: 40 MILLIGRAM;
     Route: 048
     Dates: start: 20090901
  3. NUVIGIL [Suspect]
     Indication: FATIGUE
  4. NUVIGIL [Suspect]
     Indication: SLEEP APNOEA SYNDROME
     Dosage: 250 MILLIGRAM;
     Route: 048
     Dates: start: 20091218, end: 20091218

REACTIONS (1)
  - FEELING ABNORMAL [None]
